FAERS Safety Report 4273248-7 (Version None)
Quarter: 2004Q1

REPORT INFORMATION
  Report Type: 
  Country: None (occurrence: None)
  Receive Date: 20040116
  Receipt Date: 20030926
  Transmission Date: 20041129
  Serious: Yes (Congenital Anomaly)
  Sender: FDA-Public Use
  Company Number: US-ROCHE-348109

PATIENT
  Age: 29 Week
  Sex: Male
  Weight: 1.1 kg

DRUGS (9)
  1. FORTOVASE [Suspect]
     Indication: HIV INFECTION
     Dates: start: 20030312
  2. DDI [Suspect]
     Indication: HIV INFECTION
     Dates: end: 20030312
  3. VIRAMUNE [Suspect]
     Indication: HIV INFECTION
     Dates: end: 20030312
  4. RETROVIR [Suspect]
     Indication: HIV INFECTION
     Dates: end: 20030312
  5. ZIAGEN [Suspect]
     Indication: HIV INFECTION
     Dates: start: 20030312
  6. EPIVIR [Suspect]
     Indication: HIV INFECTION
     Dates: start: 20030312
  7. VIRACEPT [Suspect]
     Indication: HIV INFECTION
     Dates: start: 20030312
  8. DEXAMETHASONE [Concomitant]
  9. INDOCIN [Concomitant]

REACTIONS (3)
  - MATERNAL DRUGS AFFECTING FOETUS [None]
  - PATENT DUCTUS ARTERIOSUS [None]
  - PREMATURE BABY [None]
